FAERS Safety Report 4340702-9 (Version None)
Quarter: 2004Q2

REPORT INFORMATION
  Report Type: 
  Country: None (occurrence: None)
  Receive Date: 20040413
  Receipt Date: 20040402
  Transmission Date: 20050107
  Serious: Yes (Hospitalization)
  Sender: FDA-Public Use
  Company Number: 04P-163-0255981-00

PATIENT
  Age: 55 Year
  Sex: Female
  Weight: 55.7924 kg

DRUGS (8)
  1. ISOPTIN SR [Suspect]
  2. ATENOLOL [Suspect]
     Indication: HYPERTENSION
     Dosage: 50 MG, 1 IN 1 D
     Dates: start: 19990120
  3. POTASSIUM CHLORIDE [Concomitant]
  4. ENALAPRIL MALEATE [Concomitant]
  5. POLYSACCHARIDE-IRON COMPLEX [Concomitant]
  6. DIGOXIN [Concomitant]
  7. FUROSEMIDE [Concomitant]
  8. INSULIN [Concomitant]

REACTIONS (1)
  - CARDIAC FAILURE [None]
